FAERS Safety Report 11335111 (Version 4)
Quarter: 2017Q1

REPORT INFORMATION
  Report Type: Report from Study
  Country: ES (occurrence: ES)
  Receive Date: 20150804
  Receipt Date: 20170126
  Transmission Date: 20170428
  Serious: Yes (Hospitalization)
  Sender: FDA-Public Use
  Company Number: ES-ROCHE-1510431

PATIENT
  Age: 69 Year
  Sex: Male

DRUGS (13)
  1. BENDAMUSTINE [Suspect]
     Active Substance: BENDAMUSTINE
     Indication: CHRONIC LYMPHOCYTIC LEUKAEMIA
     Dosage: LAST DOSE PRIOR TO ONSET OF FEBRILE SYNDROME TAKEN ON 20/NOV/2014, AND PRIOR TO EPISODES OF NEUTROPE
     Route: 042
     Dates: start: 20140828, end: 20141217
  2. OMEPRAZOL [Concomitant]
     Active Substance: OMEPRAZOLE
  3. OBINUTUZUMAB [Suspect]
     Active Substance: OBINUTUZUMAB
     Dosage: LAST DOSE PRIOR TO ONSET OF FEBRILE SYNDROME TAKEN ON 19/NOV/2014, AND PRIOR TO EPISODES OF NEUTROPE
     Route: 042
     Dates: start: 20150220
  4. RYTMONORM [Concomitant]
     Active Substance: PROPAFENONE
  5. CARDURAN NEO [Concomitant]
     Active Substance: DOXAZOSIN MESYLATE
  6. BENDAMUSTINE [Suspect]
     Active Substance: BENDAMUSTINE
     Dosage: LAST DOSE PRIOR TO ONSET OF FEBRILE SYNDROME TAKEN ON 20/NOV/2014, AND PRIOR TO EPISODES OF NEUTROPE
     Route: 042
     Dates: start: 20150220
  7. DEXAMETHASONE. [Suspect]
     Active Substance: DEXAMETHASONE
     Indication: CHRONIC LYMPHOCYTIC LEUKAEMIA
     Dosage: LAST DOSE PRIOR TO ONSET OF EVENT TAKEN ON 20/NOV/2014
     Route: 065
     Dates: start: 20140829
  8. ZARATOR [Concomitant]
     Active Substance: ATORVASTATIN CALCIUM
  9. OBINUTUZUMAB [Suspect]
     Active Substance: OBINUTUZUMAB
     Indication: CHRONIC LYMPHOCYTIC LEUKAEMIA
     Dosage: LAST DOSE PRIOR TO ONSET OF FEBRILE SYNDROME TAKEN ON 19/NOV/2014, AND PRIOR TO EPISODES OF NEUTROPE
     Route: 042
     Dates: start: 20140827, end: 20141217
  10. BENDAMUSTINE [Suspect]
     Active Substance: BENDAMUSTINE
     Dosage: LAST DOSE PRIOR TO ONSET OF FEBRILE SYNDROME TAKEN ON 20/NOV/2014, AND PRIOR TO EPISODES OF NEUTROPE
     Route: 042
     Dates: start: 20150102, end: 20150130
  11. TRANXILIUM [Concomitant]
     Active Substance: CLORAZEPATE DIPOTASSIUM
  12. OBINUTUZUMAB [Suspect]
     Active Substance: OBINUTUZUMAB
     Dosage: LAST DOSE PRIOR TO ONSET OF FEBRILE SYNDROME TAKEN ON 19/NOV/2014, AND PRIOR TO EPISODES OF NEUTROPE
     Route: 042
     Dates: start: 20150102, end: 20150130
  13. SUTRIL [Concomitant]
     Active Substance: TORSEMIDE

REACTIONS (2)
  - Febrile neutropenia [Recovered/Resolved]
  - Pyrexia [Recovered/Resolved]

NARRATIVE: CASE EVENT DATE: 20141213
